FAERS Safety Report 10242579 (Version 2)
Quarter: 2014Q2

REPORT INFORMATION
  Report Type: Spontaneous
  Country: US (occurrence: US)
  Receive Date: 20140617
  Receipt Date: 20140627
  Transmission Date: 20141212
  Serious: Yes (Death, Hospitalization, Disabling, Other)
  Sender: FDA-Public Use
  Company Number: US-009507513-1406USA008449

PATIENT
  Sex: Female
  Weight: 66.67 kg

DRUGS (2)
  1. JANUVIA [Suspect]
     Indication: TYPE 2 DIABETES MELLITUS
     Dosage: 25 MG, QD
     Route: 048
     Dates: start: 20111221, end: 20111229
  2. JANUVIA [Suspect]
     Dosage: 100 MG, QD
     Route: 048
     Dates: start: 20111229, end: 20120628

REACTIONS (55)
  - Pancreatic carcinoma [Fatal]
  - Pancreatic carcinoma recurrent [Fatal]
  - Pancreaticoduodenectomy [Unknown]
  - Metastases to lymph nodes [Unknown]
  - Hepatic enzyme abnormal [Unknown]
  - Pancytopenia [Recovering/Resolving]
  - Myocardial infarction [Unknown]
  - Dehydration [Recovered/Resolved]
  - Hypovolaemia [Unknown]
  - Hyperbilirubinaemia [Unknown]
  - Hypotension [Unknown]
  - Pancreatitis acute [Unknown]
  - Blood glucose abnormal [Unknown]
  - Gastritis [Unknown]
  - Peripheral vascular disorder [Unknown]
  - Diabetic retinopathy [Unknown]
  - Radiotherapy [Unknown]
  - Hepatic enzyme abnormal [Unknown]
  - Bile duct obstruction [Unknown]
  - Large intestinal ulcer [Unknown]
  - Diabetes mellitus inadequate control [Unknown]
  - Arterial occlusive disease [Unknown]
  - Adverse drug reaction [Unknown]
  - Pancreatic atrophy [Unknown]
  - Pancreatic fibrosis [Unknown]
  - Pruritus [Unknown]
  - Stress [Unknown]
  - Dizziness [Unknown]
  - Pollakiuria [Unknown]
  - Anxiety [Recovered/Resolved]
  - Depression [Recovered/Resolved]
  - Pharyngeal inflammation [Unknown]
  - Mucosal dryness [Unknown]
  - Liver disorder [Unknown]
  - Hepatitis acute [Unknown]
  - Conjunctival hyperaemia [Unknown]
  - Adverse event [Unknown]
  - Gastrointestinal disorder [Unknown]
  - Pruritus generalised [Unknown]
  - Supraventricular tachycardia [Unknown]
  - Psoriasis [Unknown]
  - Psoriatic arthropathy [Recovering/Resolving]
  - Migraine [Unknown]
  - Hyperlipidaemia [Unknown]
  - Treatment noncompliance [Unknown]
  - Arthritis [Unknown]
  - Anaemia [Not Recovered/Not Resolved]
  - Hypertension [Unknown]
  - Splenomegaly [Unknown]
  - Gastrointestinal disorder [Unknown]
  - Aphasia [Unknown]
  - Dyspepsia [Unknown]
  - Decreased appetite [Unknown]
  - Rash [Unknown]
  - Headache [Unknown]
